FAERS Safety Report 13254398 (Version 2)
Quarter: 2017Q1

REPORT INFORMATION
  Report Type: Spontaneous
  Country: AT (occurrence: AT)
  Receive Date: 20170221
  Receipt Date: 20170306
  Transmission Date: 20170428
  Serious: Yes (Death, Other)
  Sender: FDA-Public Use
  Company Number: AT-009507513-1702AUT008160

PATIENT
  Age: 58 Year
  Sex: Male

DRUGS (1)
  1. KEYTRUDA [Suspect]
     Active Substance: PEMBROLIZUMAB
     Indication: NON-SMALL CELL LUNG CANCER
     Dosage: 2MG/KG BODY WEIGHT (136G), 2 CYCLES
     Dates: start: 20161207, end: 20161221

REACTIONS (3)
  - Autoimmune colitis [Fatal]
  - Pneumonitis [Fatal]
  - Myositis [Fatal]

NARRATIVE: CASE EVENT DATE: 20170109
